FAERS Safety Report 10041906 (Version 1)
Quarter: 2014Q1

REPORT INFORMATION
  Report Type: Spontaneous
  Country: US (occurrence: US)
  Receive Date: 20140327
  Receipt Date: 20140327
  Transmission Date: 20141002
  Serious: No
  Sender: FDA-Public Use
  Company Number: US-BAXTER-2014BAX014552

PATIENT
  Sex: Male
  Weight: 68.04 kg

DRUGS (2)
  1. DIANEAL LOW CALCIUM [Suspect]
     Indication: PERITONEAL DIALYSIS
     Route: 033
     Dates: start: 2009
  2. DIANEAL LOW CALCIUM [Suspect]
     Indication: PERITONEAL DIALYSIS
     Route: 033
     Dates: start: 2009

REACTIONS (4)
  - Weight decreased [Not Recovered/Not Resolved]
  - Weight fluctuation [Unknown]
  - Peritoneal dialysis complication [Unknown]
  - Dehydration [Not Recovered/Not Resolved]
